FAERS Safety Report 18480984 (Version 4)
Quarter: 2021Q1

REPORT INFORMATION
  Report Type: Report from Study
  Country: US (occurrence: US)
  Receive Date: 20201109
  Receipt Date: 20210126
  Transmission Date: 20210419
  Serious: Yes (Hospitalization, Other)
  Sender: FDA-Public Use
  Company Number: US-BAYER-2020-236471

PATIENT
  Age: 65 Year
  Sex: Female

DRUGS (4)
  1. HYDROCHLOROTHIAZIDE. [Concomitant]
     Active Substance: HYDROCHLOROTHIAZIDE
     Dosage: UNK
     Dates: end: 202012
  2. STIVARGA [Suspect]
     Active Substance: REGORAFENIB
     Indication: COLORECTAL CANCER
     Dosage: UNK
     Route: 048
  3. LASIX [Concomitant]
     Active Substance: FUROSEMIDE
     Dosage: UNK
  4. STIVARGA [Suspect]
     Active Substance: REGORAFENIB
     Indication: COLORECTAL CANCER
     Dosage: DAILY DOSE 80 MG FOR 21 DAYS AND OFF
     Route: 048
     Dates: start: 20201026, end: 202012

REACTIONS (21)
  - Pathological fracture [Not Recovered/Not Resolved]
  - Arthritis [Not Recovered/Not Resolved]
  - Neuropathy peripheral [Not Recovered/Not Resolved]
  - Product dose omission issue [Unknown]
  - Chest pain [Recovering/Resolving]
  - Fatigue [Not Recovered/Not Resolved]
  - Respiratory tract congestion [Recovering/Resolving]
  - Headache [None]
  - Hypertension [Not Recovered/Not Resolved]
  - Off label use [None]
  - Renal function test abnormal [Unknown]
  - Diarrhoea [Not Recovered/Not Resolved]
  - Constipation [Recovering/Resolving]
  - Peripheral swelling [Unknown]
  - Poor quality sleep [Not Recovered/Not Resolved]
  - Decreased appetite [Not Recovered/Not Resolved]
  - Diarrhoea [Not Recovered/Not Resolved]
  - Musculoskeletal discomfort [Recovering/Resolving]
  - Headache [Recovering/Resolving]
  - Weight decreased [Not Recovered/Not Resolved]
  - Haemorrhoids [Recovering/Resolving]

NARRATIVE: CASE EVENT DATE: 2020
